FAERS Safety Report 8654550 (Version 2)
Quarter: 2013Q4

REPORT INFORMATION
  Report Type: Spontaneous
  Country: US (occurrence: US)
  Receive Date: 20120709
  Receipt Date: 20131031
  Transmission Date: 20140711
  Serious: Yes (Hospitalization)
  Sender: FDA-Public Use
  Company Number: US-MERCK-2012SP035459

PATIENT
  Age: 58 Year
  Sex: Male

DRUGS (3)
  1. VICTRELIS [Suspect]
     Indication: CHRONIC HEPATITIS C
     Dosage: 800 MG, Q8H
     Route: 048
     Dates: start: 20120521, end: 20120611
  2. MK-8908 [Suspect]
     Indication: PRODUCT USED FOR UNKNOWN INDICATION
  3. PEGASYS [Suspect]
     Indication: CHRONIC HEPATITIS C

REACTIONS (3)
  - Abdominal infection [Recovering/Resolving]
  - Blood count abnormal [Recovering/Resolving]
  - Renal impairment [Recovering/Resolving]
